FAERS Safety Report 5696888-7 (Version None)
Quarter: 2008Q2

REPORT INFORMATION
  Report Type: 
  Country: None (occurrence: None)
  Receive Date: 20080408
  Receipt Date: 20070108
  Transmission Date: 20081010
  Serious: No
  Sender: FDA-Public Use
  Company Number: US-BAYER-US-2007-000768

PATIENT
  Age: 22 Year
  Sex: Female
  Weight: 66 kg

DRUGS (2)
  1. YASMIN [Suspect]
     Indication: ORAL CONTRACEPTION
     Route: 048
     Dates: start: 20060401
  2. NASONEX [Concomitant]
     Indication: HYPERSENSITIVITY
     Dates: start: 20061101

REACTIONS (2)
  - DRUG DOSE OMISSION [None]
  - VAGINAL HAEMORRHAGE [None]
